FAERS Safety Report 7024981-5 (Version None)
Quarter: 2010Q4

REPORT INFORMATION
  Report Type: 
  Country: None (occurrence: None)
  Receive Date: 20101001
  Receipt Date: 20100803
  Transmission Date: 20110411
  Serious: No
  Sender: FDA-Public Use
  Company Number: US-NOVEN-10US001358

PATIENT
  Sex: Male

DRUGS (4)
  1. FENTANYL [Suspect]
     Indication: BACK PAIN
     Dosage: 50 UG/HR, EVERY 72 HOURS
     Route: 062
     Dates: start: 20100801
  2. PREDNISONE [Concomitant]
     Indication: RHEUMATOID ARTHRITIS
     Route: 048
  3. ETANERCEPT [Concomitant]
     Indication: RHEUMATOID ARTHRITIS
     Dosage: INJECTION
  4. SLEEPING PILL [Concomitant]
     Indication: INSOMNIA
     Dosage: UNK NCI, UNK

REACTIONS (2)
  - COUGH [None]
  - PRODUCT QUALITY ISSUE [None]
